FAERS Safety Report 7670756-3 (Version None)
Quarter: 2011Q3

REPORT INFORMATION
  Report Type: 
  Country: None (occurrence: None)
  Receive Date: 20110803
  Receipt Date: 20110719
  Transmission Date: 20111222
  Serious: Yes (Hospitalization)
  Sender: FDA-Public Use
  Company Number: 2011MA009051

PATIENT
  Age: 48 Year
  Sex: Female

DRUGS (2)
  1. CITALOPRAM HYDROBROMIDE [Suspect]
     Indication: DEPRESSION
     Dosage: 40 MG; QD
  2. FUROSEMIDE [Concomitant]

REACTIONS (3)
  - TORSADE DE POINTES [None]
  - ELECTROCARDIOGRAM ST-T SEGMENT DEPRESSION [None]
  - LONG QT SYNDROME [None]
